FAERS Safety Report 4270331-7 (Version None)
Quarter: 2004Q1

REPORT INFORMATION
  Report Type: 
  Country: None (occurrence: None)
  Receive Date: 20040113
  Receipt Date: 20040113
  Transmission Date: 20041129
  Serious: Yes (Life-Threatening)
  Sender: FDA-Public Use
  Company Number: None

PATIENT
  Age: 72 Year
  Sex: Male

DRUGS (2)
  1. LISINOPRIL [Suspect]
     Indication: DIABETES MELLITUS
     Dosage: 40 MG PO QD
     Route: 048
     Dates: start: 20030723, end: 20030923
  2. LISINOPRIL [Suspect]
     Indication: HYPERTENSION
     Dosage: 40 MG PO QD
     Route: 048
     Dates: start: 20030723, end: 20030923

REACTIONS (2)
  - OEDEMA MOUTH [None]
  - OROPHARYNGEAL SWELLING [None]
